FAERS Safety Report 5748069-6 (Version None)
Quarter: 2008Q2

REPORT INFORMATION
  Report Type: 
  Country: None (occurrence: None)
  Receive Date: 20080523
  Receipt Date: 20080521
  Transmission Date: 20081010
  Serious: Yes (Hospitalization, Disabling)
  Sender: FDA-Public Use
  Company Number: US-GILEAD-2008-0016147

PATIENT
  Sex: Female
  Weight: 108.96 kg

DRUGS (13)
  1. LETAIRIS [Suspect]
     Indication: PULMONARY HYPERTENSION
     Route: 048
     Dates: start: 20080328, end: 20080412
  2. REVATIO [Concomitant]
  3. PROTONIX [Concomitant]
  4. OXYGEN [Concomitant]
  5. ALBUTEROL [Concomitant]
  6. CALCIUM [Concomitant]
  7. FOLIC ACID [Concomitant]
  8. CYCLOPHOSPHAMIDE [Concomitant]
  9. LISINOPRIL [Concomitant]
  10. METOCLOPRAMIDE [Concomitant]
  11. TRIAMTERENE [Concomitant]
  12. ATIVAN [Concomitant]
  13. VITAMIN CAP [Concomitant]

REACTIONS (10)
  - ANAEMIA [None]
  - ASTHENIA [None]
  - DYSPNOEA [None]
  - FATIGUE [None]
  - HEADACHE [None]
  - HYPOXIA [None]
  - LUNG INFILTRATION [None]
  - OEDEMA PERIPHERAL [None]
  - SENSATION OF HEAVINESS [None]
  - THROMBOCYTOPENIA [None]
